FAERS Safety Report 7819427-0 (Version None)
Quarter: 2011Q4

REPORT INFORMATION
  Report Type: 
  Country: None (occurrence: None)
  Receive Date: 20111018
  Receipt Date: 20110119
  Transmission Date: 20120403
  Serious: No
  Sender: FDA-Public Use
  Company Number: US-ASTRAZENECA-2011SE03596

PATIENT
  Age: 42 Year
  Sex: Male

DRUGS (3)
  1. SYMBICORT [Suspect]
     Indication: ASTHMA
     Dosage: 1 PUFF OF 160/4.5 MCG TWO TIMES A DAY, IN THE AM AND PM
     Route: 055
     Dates: start: 20090101
  2. NEXIUM [Concomitant]
     Indication: GASTROOESOPHAGEAL REFLUX DISEASE
     Route: 048
  3. PROVENTIL-HFA [Concomitant]
     Indication: ASTHMATIC CRISIS
     Dosage: AS REQUIRED

REACTIONS (3)
  - DRUG DOSE OMISSION [None]
  - DRUG EFFECT DECREASED [None]
  - DYSPNOEA [None]
